FAERS Safety Report 22256293 (Version 1)
Quarter: 2023Q2

REPORT INFORMATION
  Report Type: Spontaneous
  Country: US (occurrence: None)
  Receive Date: 20230426
  Receipt Date: 20230426
  Transmission Date: 20230721
  Serious: Yes (Hospitalization, Disabling, Other)
  Sender: FDA-Public Use
  Company Number: None

PATIENT
  Age: 53 Year
  Sex: Female
  Weight: 48.6 kg

DRUGS (2)
  1. ENBREL [Suspect]
     Active Substance: ETANERCEPT
     Indication: Polyarthritis
     Dosage: OTHER FREQUENCY : WEEKLY;?
     Route: 058
     Dates: start: 20221007, end: 20230217
  2. ENBREL [Concomitant]
     Active Substance: ETANERCEPT
     Dates: start: 20221007, end: 20230217

REACTIONS (6)
  - Migraine [None]
  - Photophobia [None]
  - Dizziness [None]
  - Vomiting [None]
  - Vertigo [None]
  - Increased tendency to bruise [None]

NARRATIVE: CASE EVENT DATE: 20221021
